FAERS Safety Report 20407395 (Version 1)
Quarter: 2022Q1

REPORT INFORMATION
  Report Type: Spontaneous
  Country: CN (occurrence: CN)
  Receive Date: 20220131
  Receipt Date: 20220131
  Transmission Date: 20220424
  Serious: Yes (Other)
  Sender: FDA-Public Use
  Company Number: CN-ELI_LILLY_AND_COMPANY-CN202201009788

PATIENT
  Age: 68 Year
  Sex: Male
  Weight: 65 kg

DRUGS (4)
  1. INSULIN LISPRO [Suspect]
     Active Substance: INSULIN LISPRO
     Indication: Type 2 diabetes mellitus
     Dosage: 6 INTERNATIONAL UNIT, TID
     Route: 058
     Dates: start: 20220108, end: 20220111
  2. TORSEMIDE [Concomitant]
     Active Substance: TORSEMIDE
     Indication: Cardiac failure acute
     Dosage: 20 MG, DAILY
     Route: 042
     Dates: start: 20220107, end: 20220112
  3. INSULIN GLARGINE [Concomitant]
     Active Substance: INSULIN GLARGINE
     Indication: Type 2 diabetes mellitus
     Dosage: 16 INTERNATIONAL UNIT, DAILY
     Route: 058
     Dates: start: 20220107, end: 20220111
  4. SPIRONOLACTONE [Concomitant]
     Active Substance: SPIRONOLACTONE
     Indication: Cardiac failure acute
     Dosage: 20 MG, DAILY
     Route: 048
     Dates: start: 20220107, end: 20220116

REACTIONS (2)
  - PCO2 increased [Not Recovered/Not Resolved]
  - Hypokalaemia [Not Recovered/Not Resolved]

NARRATIVE: CASE EVENT DATE: 20220109
